FAERS Safety Report 12618831 (Version 2)
Quarter: 2016Q3

REPORT INFORMATION
  Report Type: Spontaneous
  Country: US (occurrence: US)
  Receive Date: 20160803
  Receipt Date: 20160901
  Transmission Date: 20161109
  Serious: Yes (Hospitalization)
  Sender: FDA-Public Use
  Company Number: US-B.I. PHARMACEUTICALS,INC./RIDGEFIELD-2016-BI-49120BP

PATIENT
  Age: 69 Year
  Sex: Female
  Weight: 177 kg

DRUGS (1)
  1. TRADJENTA [Suspect]
     Active Substance: LINAGLIPTIN
     Indication: TYPE 2 DIABETES MELLITUS
     Dosage: 5 MG
     Route: 048
     Dates: start: 2015

REACTIONS (2)
  - Gastrointestinal wall thickening [Recovered/Resolved]
  - Systemic infection [Recovered/Resolved]

NARRATIVE: CASE EVENT DATE: 201605
